FAERS Safety Report 6744429-5 (Version None)
Quarter: 2010Q2

REPORT INFORMATION
  Report Type: 
  Country: None (occurrence: None)
  Receive Date: 20100527
  Receipt Date: 20100519
  Transmission Date: 20101027
  Serious: Yes (Death)
  Sender: FDA-Public Use
  Company Number: US-PFIZER INC-2010047863

PATIENT
  Sex: Male
  Weight: 120.64 kg

DRUGS (2)
  1. ALPRAZOLAM [Suspect]
     Dosage: UNK
  2. OXYCODONE [Suspect]
     Dosage: UNK

REACTIONS (3)
  - DRUG ABUSE [None]
  - DRUG TOXICITY [None]
  - OBESITY [None]
